FAERS Safety Report 9298159 (Version 1)
Quarter: 2013Q2

REPORT INFORMATION
  Report Type: Spontaneous
  Country: AT (occurrence: AT)
  Receive Date: 20130520
  Receipt Date: 20130520
  Transmission Date: 20140414
  Serious: Yes (Hospitalization)
  Sender: FDA-Public Use
  Company Number: AT-SANOFI-AVENTIS-2013SA049670

PATIENT
  Age: 68 Year
  Sex: Female
  Weight: 73 kg

DRUGS (4)
  1. TAXOTERE [Suspect]
     Indication: SIGNET-RING CELL CARCINOMA
     Route: 042
     Dates: start: 20130304, end: 20130304
  2. CARBOPLATIN [Suspect]
     Indication: SIGNET-RING CELL CARCINOMA
     Dosage: AUC 5
  3. FLUOROURACIL [Suspect]
     Indication: SIGNET-RING CELL CARCINOMA
     Route: 042
  4. NEULASTA [Suspect]
     Indication: PRODUCT USED FOR UNKNOWN INDICATION
     Route: 058
     Dates: start: 20130310, end: 20130310

REACTIONS (5)
  - Pancytopenia [Unknown]
  - Body temperature increased [Unknown]
  - Neutropenia [Recovered/Resolved]
  - Cardiovascular disorder [Unknown]
  - Hepatorenal failure [Unknown]
